FAERS Safety Report 22349127 (Version 3)
Quarter: 2024Q4

REPORT INFORMATION
  Report Type: Report from Study
  Country: US (occurrence: US)
  Receive Date: 20230522
  Receipt Date: 20241018
  Transmission Date: 20250114
  Serious: No
  Sender: ROCHE
  Company Number: US-ROCHE-3353545

PATIENT
  Age: 30 Year
  Sex: Female

DRUGS (4)
  1. XOLAIR [Suspect]
     Active Substance: OMALIZUMAB
     Indication: Urticaria
     Dosage: STRENGTH: 150 MG/ML
     Route: 058
     Dates: start: 20230120
  2. XOLAIR [Suspect]
     Active Substance: OMALIZUMAB
  3. VITAMIN D3 [Concomitant]
     Active Substance: CHOLECALCIFEROL
  4. ZYRTEC [Concomitant]
     Active Substance: CETIRIZINE HYDROCHLORIDE
     Route: 048
     Dates: start: 2019

REACTIONS (2)
  - Off label use [Unknown]
  - No adverse event [Unknown]
